FAERS Safety Report 23152220 (Version 2)
Quarter: 2023Q4

REPORT INFORMATION
  Report Type: Spontaneous
  Country: US (occurrence: US)
  Receive Date: 20231107
  Receipt Date: 20231115
  Transmission Date: 20240109
  Serious: No
  Sender: FDA-Public Use
  Company Number: US-OPELLA-2023OHG011115

PATIENT

DRUGS (1)
  1. ARTHRITIS HOT [Suspect]
     Active Substance: MENTHOL\METHYL SALICYLATE
     Indication: Product used for unknown indication
     Route: 065

REACTIONS (4)
  - Application site pain [Recovering/Resolving]
  - Insomnia [Unknown]
  - Application site scab [Recovering/Resolving]
  - Condition aggravated [Recovering/Resolving]
